FAERS Safety Report 18209124 (Version 2)
Quarter: 2020Q3

REPORT INFORMATION
  Report Type: Spontaneous
  Country: ES (occurrence: ES)
  Receive Date: 20200828
  Receipt Date: 20200907
  Transmission Date: 20201103
  Serious: Yes (Death, Hospitalization, Other)
  Sender: FDA-Public Use
  Company Number: ES-ALEXION-A202012497

PATIENT
  Age: 40 Year
  Sex: Male

DRUGS (2)
  1. SOLIRIS [Suspect]
     Active Substance: ECULIZUMAB
     Indication: ATYPICAL HAEMOLYTIC URAEMIC SYNDROME
     Dosage: UNK
     Route: 065
  2. SOLIRIS [Suspect]
     Active Substance: ECULIZUMAB
     Indication: BONE MARROW TRANSPLANT

REACTIONS (7)
  - Pulmonary alveolar haemorrhage [Unknown]
  - Shock [Unknown]
  - Sepsis [Unknown]
  - Haemorrhage [Unknown]
  - Coagulopathy [Unknown]
  - Multiple organ dysfunction syndrome [Fatal]
  - Infection [Fatal]

NARRATIVE: CASE EVENT DATE: 20200821
